FAERS Safety Report 7545840-5 (Version None)
Quarter: 2011Q2

REPORT INFORMATION
  Report Type: 
  Country: None (occurrence: None)
  Receive Date: 20110613
  Receipt Date: 20110613
  Transmission Date: 20111010
  Serious: Yes (Other)
  Sender: FDA-Public Use
  Company Number: None

PATIENT
  Age: 61 Year
  Sex: Female
  Weight: 62.5964 kg

DRUGS (5)
  1. ASMANEX TWISTHALER [Suspect]
     Indication: ASTHMA
     Dosage: 440 MCG TWICE DAILY INHAL
     Route: 055
     Dates: start: 20110529, end: 20110611
  2. FORADIL [Concomitant]
  3. QVAR 40 [Concomitant]
  4. SPIRIVA [Concomitant]
  5. AZITHROMYCIN -Z-PACK- [Concomitant]

REACTIONS (3)
  - DYSPHONIA [None]
  - ASTHMA [None]
  - PEAK EXPIRATORY FLOW RATE DECREASED [None]
